FAERS Safety Report 20091601 (Version 2)
Quarter: 2021Q4

REPORT INFORMATION
  Report Type: Spontaneous
  Country: HR (occurrence: HR)
  Receive Date: 20211119
  Receipt Date: 20211201
  Transmission Date: 20220304
  Serious: Yes (Other)
  Sender: FDA-Public Use
  Company Number: HR-NOVARTISPH-NVSC2021HR261954

PATIENT
  Age: 63 Year
  Sex: Female

DRUGS (13)
  1. ATORVASTATIN [Interacting]
     Active Substance: ATORVASTATIN
     Indication: Myocardial infarction
     Dosage: 80 MG, QD
     Route: 065
     Dates: start: 201504, end: 20210513
  2. EZETIMIBE [Interacting]
     Active Substance: EZETIMIBE
     Indication: Myocardial infarction
     Dosage: 10 MG, QD
     Route: 048
     Dates: start: 201504, end: 20210513
  3. TACROLIMUS [Interacting]
     Active Substance: TACROLIMUS
     Indication: Immunosuppressant drug therapy
     Dosage: UNK
     Route: 065
  4. TACROLIMUS [Interacting]
     Active Substance: TACROLIMUS
     Indication: Renal transplant
     Dosage: REDUCTION
     Route: 065
     Dates: start: 202104, end: 20210513
  5. TACROLIMUS [Interacting]
     Active Substance: TACROLIMUS
     Indication: COVID-19
  6. TACROLIMUS [Interacting]
     Active Substance: TACROLIMUS
     Indication: Pneumonia
  7. MYCOPHENOLATE MOFETIL [Concomitant]
     Active Substance: MYCOPHENOLATE MOFETIL
     Indication: Renal transplant
     Dosage: CESSATION
     Route: 065
     Dates: start: 2021, end: 2021
  8. MYCOPHENOLATE MOFETIL [Concomitant]
     Active Substance: MYCOPHENOLATE MOFETIL
     Indication: Immunosuppressant drug therapy
  9. MYCOPHENOLATE MOFETIL [Concomitant]
     Active Substance: MYCOPHENOLATE MOFETIL
     Indication: Pneumonia
  10. MYCOPHENOLATE MOFETIL [Concomitant]
     Active Substance: MYCOPHENOLATE MOFETIL
     Indication: COVID-19
  11. CEFTRIAXONE [Concomitant]
     Active Substance: CEFTRIAXONE
     Indication: COVID-19 pneumonia
     Dosage: UNK
     Route: 065
  12. DEXAMETHASONE [Concomitant]
     Active Substance: DEXAMETHASONE
     Indication: COVID-19 pneumonia
     Dosage: UNK
     Route: 065
  13. DEXAMETHASONE [Concomitant]
     Active Substance: DEXAMETHASONE
     Indication: COVID-19

REACTIONS (3)
  - Myopathy toxic [Recovered/Resolved]
  - Liver injury [Recovered/Resolved]
  - Drug interaction [Unknown]

NARRATIVE: CASE EVENT DATE: 20150401
